FAERS Safety Report 10382004 (Version 1)
Quarter: 2014Q1

REPORT INFORMATION
  Report Type: Spontaneous
  Country: US (occurrence: None)
  Receive Date: 20140306
  Receipt Date: 20140306
  Transmission Date: 20141002
  Serious: Yes (Hospitalization)
  Sender: FDA-Public Use
  Company Number: 163-21880-13090716

PATIENT
  Age: 71 Year
  Sex: Male
  Weight: 85.73 kg

DRUGS (8)
  1. REVLIMID (LENALIDOMIDE) (25 MILLIGRAM, CAPSULES) [Suspect]
     Indication: PLASMA CELL MYELOMA
     Route: 048
     Dates: start: 20110101
  2. DILAUDID (HYDROMORPHONE HYDROCHLORIDE) [Concomitant]
  3. CIPRO (CIPROFLOXACIN) [Concomitant]
  4. OMEPRAZOLE [Concomitant]
  5. VITAMIN B-12 (CYANOCOBALAMIN) [Concomitant]
  6. CALCIUM [Concomitant]
  7. OXYCONTIN (OXYCODONE HYDROCHLORIDE) [Concomitant]
  8. ADULT LOW DOSE ASPIRIN (ACETYLSALICYLIC ACID) [Concomitant]

REACTIONS (1)
  - Pneumonia [None]
